FAERS Safety Report 7549545-6 (Version None)
Quarter: 2011Q2

REPORT INFORMATION
  Report Type: 
  Country: None (occurrence: None)
  Receive Date: 20110615
  Receipt Date: 20110526
  Transmission Date: 20111010
  Serious: Yes (Hospitalization)
  Sender: FDA-Public Use
  Company Number: A0837765A

PATIENT
  Age: 51 Year
  Sex: Male
  Weight: 104.1 kg

DRUGS (7)
  1. BUSPAR [Concomitant]
  2. NEURONTIN [Concomitant]
  3. LIPITOR [Concomitant]
  4. HUMULIN R [Concomitant]
  5. TOPROL-XL [Concomitant]
  6. AVANDIA [Suspect]
     Dosage: 2MG PER DAY
     Route: 048
     Dates: end: 20010101
  7. ALTACE [Concomitant]

REACTIONS (4)
  - CARDIAC FAILURE CONGESTIVE [None]
  - CARDIAC DISORDER [None]
  - CORONARY ARTERY DISEASE [None]
  - ANGINA PECTORIS [None]
